FAERS Safety Report 7433655-8 (Version None)
Quarter: 2011Q2

REPORT INFORMATION
  Report Type: 
  Country: None (occurrence: None)
  Receive Date: 20110422
  Receipt Date: 20110420
  Transmission Date: 20111010
  Serious: Yes (Hospitalization)
  Sender: FDA-Public Use
  Company Number: US-MERCK-1101USA00639

PATIENT
  Age: 39 Year
  Sex: Male
  Weight: 84 kg

DRUGS (18)
  1. ISENTRESS [Suspect]
     Route: 048
     Dates: start: 20110101
  2. FENOFIBRATE [Concomitant]
     Route: 065
  3. DILAUDID [Concomitant]
     Route: 065
  4. DIAZEPAN [Concomitant]
     Route: 065
  5. FLOMAX [Concomitant]
     Route: 065
  6. ISENTRESS [Suspect]
     Indication: HIV INFECTION
     Route: 048
     Dates: start: 20080601, end: 20110101
  7. SEROQUEL [Concomitant]
     Route: 065
  8. CARDURA [Concomitant]
     Route: 065
  9. EPZICOM [Concomitant]
     Route: 065
     Dates: start: 20080601
  10. ANDROGEL [Concomitant]
     Route: 065
  11. PRAVACHOL [Concomitant]
     Route: 065
  12. ZOFRAN [Concomitant]
     Route: 065
  13. LOVAZA [Concomitant]
     Route: 065
  14. OPANA [Concomitant]
     Route: 065
  15. PRAVASTATIN SODIUM [Concomitant]
     Route: 065
  16. VIRAMUNE [Concomitant]
     Route: 065
     Dates: start: 20080601
  17. EFFEXOR [Concomitant]
     Route: 065
  18. FLEXERIL [Concomitant]
     Route: 048

REACTIONS (2)
  - HALLUCINATION, AUDITORY [None]
  - PARANOIA [None]
